FAERS Safety Report 6679663-6 (Version None)
Quarter: 2010Q2

REPORT INFORMATION
  Report Type: 
  Country: None (occurrence: None)
  Receive Date: 20100413
  Receipt Date: 20100402
  Transmission Date: 20101027
  Serious: Yes (Hospitalization)
  Sender: FDA-Public Use
  Company Number: B0645127A

PATIENT
  Sex: Female

DRUGS (3)
  1. ZOVIRAX [Suspect]
     Dosage: 500MG THREE TIMES PER DAY
     Route: 042
     Dates: start: 20100125, end: 20100207
  2. TAREG [Suspect]
     Dosage: 80MG PER DAY
     Route: 048
     Dates: start: 20100203, end: 20100206
  3. TRIFLUCAN [Concomitant]
     Indication: ORAL CANDIDIASIS
     Route: 065
     Dates: start: 20100125

REACTIONS (4)
  - ALTERED STATE OF CONSCIOUSNESS [None]
  - APTYALISM [None]
  - RENAL FAILURE ACUTE [None]
  - URINARY TRACT INFECTION [None]
